FAERS Safety Report 20335597 (Version 1)
Quarter: 2022Q1

REPORT INFORMATION
  Report Type: Spontaneous
  Country: CN (occurrence: CN)
  Receive Date: 20220114
  Receipt Date: 20220114
  Transmission Date: 20220423
  Serious: Yes (Other)
  Sender: FDA-Public Use
  Company Number: CN-PFIZER INC-202200028451

PATIENT
  Age: 3 Week
  Sex: Male
  Weight: 2.5 kg

DRUGS (1)
  1. FLUCONAZOLE [Suspect]
     Active Substance: FLUCONAZOLE
     Indication: Pneumonia
     Dosage: 4.2 ML, 1X/DAY
     Route: 041
     Dates: start: 20211104, end: 20211104

REACTIONS (2)
  - Arrhythmia neonatal [Recovered/Resolved]
  - Neonatal tachypnoea [Recovered/Resolved]

NARRATIVE: CASE EVENT DATE: 20211104
